FAERS Safety Report 24568214 (Version 2)
Quarter: 2024Q4

REPORT INFORMATION
  Report Type: Spontaneous
  Country: IE (occurrence: IE)
  Receive Date: 20241031
  Receipt Date: 20241128
  Transmission Date: 20250115
  Serious: Yes (Life-Threatening)
  Sender: PHARMACOSMOS A/S
  Company Number: None

PATIENT
  Age: 37 Year
  Sex: Female
  Weight: 117 kg

DRUGS (2)
  1. FERRIC DERISOMALTOSE [Suspect]
     Active Substance: FERRIC DERISOMALTOSE
     Indication: Iron deficiency anaemia
     Dates: start: 20241003, end: 20241003
  2. AMOXICILLIN\CLAVULANIC ACID [Concomitant]
     Active Substance: AMOXICILLIN\CLAVULANIC ACID
     Indication: Gastrointestinal disorder prophylaxis
     Dates: start: 20240930

REACTIONS (2)
  - Anaphylactic reaction [Recovered/Resolved]
  - Retinal disorder [Recovered/Resolved]

NARRATIVE: CASE EVENT DATE: 20241003
